FAERS Safety Report 22035248 (Version 2)
Quarter: 2023Q2

REPORT INFORMATION
  Report Type: Spontaneous
  Country: JP (occurrence: JP)
  Receive Date: 20230224
  Receipt Date: 20230406
  Transmission Date: 20230722
  Serious: Yes (Hospitalization, Other)
  Sender: FDA-Public Use
  Company Number: JP-SUNOVION-2022SMP014884

PATIENT
  Age: 39 Year
  Sex: Female
  Weight: 58 kg

DRUGS (14)
  1. LATUDA [Suspect]
     Active Substance: LURASIDONE HYDROCHLORIDE
     Indication: Bipolar disorder
     Dosage: 20 MG, QD
     Route: 048
     Dates: start: 20220725, end: 20220821
  2. LATUDA [Suspect]
     Active Substance: LURASIDONE HYDROCHLORIDE
     Dosage: 40 MG, QD
     Route: 048
     Dates: start: 20220822, end: 20221010
  3. ESZOPICLONE [Suspect]
     Active Substance: ESZOPICLONE
     Indication: Insomnia
     Dosage: 3 MG, QD
     Route: 048
     Dates: start: 20220111, end: 20221010
  4. ESZOPICLONE [Suspect]
     Active Substance: ESZOPICLONE
     Dosage: UNK UNK, SINGLE
     Route: 048
     Dates: start: 20221011, end: 20221011
  5. LAMICTAL [Suspect]
     Active Substance: LAMOTRIGINE
     Indication: Bipolar disorder
     Dosage: 50 MG, BID
     Route: 048
     Dates: start: 20220330, end: 20221003
  6. PROPYLTHIOURACIL [Concomitant]
     Active Substance: PROPYLTHIOURACIL
     Indication: Hyperthyroidism
     Dosage: 50 MG, BID
     Route: 048
  7. Keishikashakuyakuto [Concomitant]
     Indication: Flashback
     Dosage: 3 G, BID
     Route: 048
     Dates: start: 20210713, end: 20221010
  8. CYMBALTA [Concomitant]
     Active Substance: DULOXETINE HYDROCHLORIDE
     Indication: Bipolar disorder
     Dosage: 60 MG, QD
     Route: 048
     Dates: start: 20211102, end: 20221010
  9. BROMAZEPAM [Concomitant]
     Active Substance: BROMAZEPAM
     Indication: Insomnia
     Dosage: 2 MG, QD
     Route: 048
     Dates: start: 20220121, end: 20221010
  10. FLUNITRAZEPAM [Concomitant]
     Active Substance: FLUNITRAZEPAM
     Indication: Insomnia
     Dosage: 2 MG, QD
     Route: 048
     Dates: start: 20220124, end: 20221010
  11. FLUNITRAZEPAM [Concomitant]
     Active Substance: FLUNITRAZEPAM
     Dosage: UNK UNK, SINGLE
     Route: 048
     Dates: start: 20221011, end: 20221011
  12. QUETIAPINE FUMARATE [Concomitant]
     Active Substance: QUETIAPINE FUMARATE
     Indication: Bipolar disorder
     Dosage: 50 MG, TID
     Route: 048
     Dates: start: 20220223, end: 20221010
  13. QUETIAPINE FUMARATE [Concomitant]
     Active Substance: QUETIAPINE FUMARATE
     Dosage: UNK UNK, SINGLE
     Route: 048
     Dates: start: 20221011, end: 20221011
  14. EPINASTINE HYDROCHLORIDE [Concomitant]
     Active Substance: EPINASTINE HYDROCHLORIDE
     Indication: Rhinitis allergic
     Dosage: 20 MG, QD
     Route: 048
     Dates: start: 20220330, end: 20221010

REACTIONS (3)
  - Suicide attempt [Recovered/Resolved]
  - Drug eruption [Recovered/Resolved]
  - Intentional overdose [Unknown]

NARRATIVE: CASE EVENT DATE: 20220930
